FAERS Safety Report 21758912 (Version 1)
Quarter: 2022Q4

REPORT INFORMATION
  Report Type: Report from Study
  Country: US (occurrence: US)
  Receive Date: 20221221
  Receipt Date: 20221221
  Transmission Date: 20230113
  Serious: No
  Sender: FDA-Public Use
  Company Number: US-ABBVIE-4230393

PATIENT
  Sex: Female

DRUGS (1)
  1. RINVOQ [Suspect]
     Active Substance: UPADACITINIB
     Indication: Rheumatoid arthritis
     Route: 048

REACTIONS (7)
  - Fall [Recovering/Resolving]
  - Skin laceration [Unknown]
  - Neuropathy peripheral [Unknown]
  - Skin abrasion [Unknown]
  - Cellulitis [Unknown]
  - Blister [Unknown]
  - Hand fracture [Recovering/Resolving]

NARRATIVE: CASE EVENT DATE: 20220101
